FAERS Safety Report 16442078 (Version 2)
Quarter: 2020Q2

REPORT INFORMATION
  Report Type: Report from Study
  Country: None (occurrence: US)
  Receive Date: 20190617
  Receipt Date: 20200604
  Transmission Date: 20200713
  Serious: No
  Sender: FDA-Public Use
  Company Number: US-US WORLDMEDS, LLC-USW201812-001900

PATIENT
  Age: 57 Year
  Sex: Male

DRUGS (5)
  1. APOKYN [Suspect]
     Active Substance: APOMORPHINE HYDROCHLORIDE
     Indication: PARKINSON^S DISEASE
     Route: 058
     Dates: start: 20181211
  2. APOKYN [Suspect]
     Active Substance: APOMORPHINE HYDROCHLORIDE
     Dosage: 30 MG/3ML
     Route: 058
     Dates: start: 20181212
  3. CARBIDOPA / LEVODOPA [Concomitant]
     Active Substance: CARBIDOPA\LEVODOPA
     Dates: start: 2017
  4. STATIN [Concomitant]
     Active Substance: UNSPECIFIED INGREDIENT
  5. HYDROCHLOROTHIAZIDE AND LISINOPRIL [Concomitant]
     Active Substance: HYDROCHLOROTHIAZIDE\LISINOPRIL

REACTIONS (6)
  - Blood pressure decreased [Recovered/Resolved]
  - Fatigue [Recovered/Resolved]
  - Hyperhidrosis [Recovered/Resolved]
  - Cold sweat [Recovered/Resolved]
  - Heart rate decreased [Recovered/Resolved]
  - Flushing [Recovered/Resolved]

NARRATIVE: CASE EVENT DATE: 20181211
